FAERS Safety Report 21360387 (Version 2)
Quarter: 2022Q4

REPORT INFORMATION
  Report Type: Spontaneous
  Country: US (occurrence: US)
  Receive Date: 20220921
  Receipt Date: 20221013
  Transmission Date: 20230113
  Serious: Yes (Hospitalization)
  Sender: FDA-Public Use
  Company Number: US-MYLANLABS-2022M1095171

PATIENT
  Age: 4 Decade
  Sex: Female

DRUGS (3)
  1. METHIMAZOLE [Suspect]
     Active Substance: METHIMAZOLE
     Indication: Basedow^s disease
     Dosage: 10 MILLIGRAM, QD
     Route: 048
  2. METHIMAZOLE [Suspect]
     Active Substance: METHIMAZOLE
     Dosage: 15 MILLIGRAM, QD, 0.21 MG/KG
     Route: 048
  3. ATENOLOL [Concomitant]
     Active Substance: ATENOLOL
     Indication: Essential hypertension
     Dosage: 25 MILLIGRAM, BID
     Route: 065

REACTIONS (5)
  - Jaundice cholestatic [Recovered/Resolved]
  - Febrile neutropenia [Recovered/Resolved]
  - Pharyngitis [Recovered/Resolved]
  - Agranulocytosis [Recovered/Resolved]
  - Lymphadenopathy [Recovered/Resolved]
